FAERS Safety Report 8385038-4 (Version None)
Quarter: 2012Q2

REPORT INFORMATION
  Report Type: 
  Country: None (occurrence: None)
  Receive Date: 20120524
  Receipt Date: 20120518
  Transmission Date: 20120825
  Serious: Yes (Hospitalization, Disabling, Other)
  Sender: FDA-Public Use
  Company Number: US-MERCK-1202USA02465

PATIENT
  Age: 53 Year
  Sex: Female
  Weight: 65 kg

DRUGS (11)
  1. ALLEGRA-D 12 HOUR [Concomitant]
     Indication: HYPERSENSITIVITY
     Route: 065
     Dates: start: 20020101, end: 20110101
  2. SYNTHROID [Concomitant]
     Indication: HYPOTHYROIDISM
     Route: 065
  3. FOSAMAX [Suspect]
     Route: 048
     Dates: start: 20010315, end: 20040117
  4. ADVAIR DISKUS 100/50 [Concomitant]
     Indication: ASTHMA
     Route: 055
     Dates: start: 20060101, end: 20100101
  5. FOSAMAX [Suspect]
     Indication: OSTEOPOROSIS
     Route: 048
     Dates: start: 19960327, end: 20010315
  6. FOSAMAX [Suspect]
     Route: 048
     Dates: start: 20040618, end: 20060208
  7. OGEN [Concomitant]
     Route: 065
     Dates: start: 19930101, end: 20050101
  8. FOSAMAX [Suspect]
     Route: 048
     Dates: start: 20040618, end: 20060208
  9. FOSAMAX [Suspect]
     Indication: OSTEOPENIA
     Route: 048
     Dates: start: 19960327, end: 20010315
  10. FOSAMAX [Suspect]
     Route: 048
     Dates: start: 20010315, end: 20040117
  11. NASACORT [Concomitant]
     Indication: HYPERSENSITIVITY
     Route: 065
     Dates: start: 20060101, end: 20110101

REACTIONS (41)
  - FEMUR FRACTURE [None]
  - INTERVERTEBRAL DISC SPACE NARROWING [None]
  - PNEUMONIA [None]
  - ORAL CANDIDIASIS [None]
  - LYMPHADENOPATHY [None]
  - OSTEOARTHRITIS [None]
  - LARYNGITIS [None]
  - LACERATION [None]
  - GASTROOESOPHAGEAL REFLUX DISEASE [None]
  - BLOOD CHOLESTEROL INCREASED [None]
  - OVERDOSE [None]
  - FATIGUE [None]
  - TOOTH DISORDER [None]
  - PANIC ATTACK [None]
  - ALLERGY TO VACCINE [None]
  - OEDEMA PERIPHERAL [None]
  - MEMORY IMPAIRMENT [None]
  - ANXIETY [None]
  - BARTHOLIN'S CYST [None]
  - GASTRIC POLYPS [None]
  - FOOT FRACTURE [None]
  - TOOTH INFECTION [None]
  - MEDICAL DEVICE COMPLICATION [None]
  - EXOSTOSIS [None]
  - FRACTURE NONUNION [None]
  - ATROPHIC VULVOVAGINITIS [None]
  - PHARYNGITIS [None]
  - ONYCHOMYCOSIS [None]
  - LOW TURNOVER OSTEOPATHY [None]
  - BLOOD PRESSURE INCREASED [None]
  - IRRITABLE BOWEL SYNDROME [None]
  - URINARY TRACT INFECTION [None]
  - URINARY INCONTINENCE [None]
  - DRUG HYPERSENSITIVITY [None]
  - BREAST MASS [None]
  - DEPRESSION [None]
  - EOSINOPHILIC OESOPHAGITIS [None]
  - HYPERSENSITIVITY [None]
  - HERPES SIMPLEX [None]
  - CELLULITIS [None]
  - CHEST DISCOMFORT [None]
